FAERS Safety Report 15456452 (Version 1)
Quarter: 2018Q4

REPORT INFORMATION
  Report Type: Spontaneous
  Country: GB (occurrence: DE)
  Receive Date: 20181002
  Receipt Date: 20181002
  Transmission Date: 20190204
  Serious: Yes (Hospitalization, Other)
  Sender: FDA-Public Use
  Company Number: DE-FRESENIUS KABI-FK201810207

PATIENT
  Age: 43 Year

DRUGS (1)
  1. OCTREOTIDE INJECTION (MANUFACTURER UNKNOWN) [Suspect]
     Active Substance: OCTREOTIDE
     Indication: NEUROENDOCRINE TUMOUR
     Dosage: UNK
     Route: 030
     Dates: start: 201704

REACTIONS (17)
  - Aortic valve incompetence [Unknown]
  - Mitral valve incompetence [Unknown]
  - Cardiac failure [Unknown]
  - Coronary artery disease [Unknown]
  - Oedema peripheral [Unknown]
  - Disease progression [Unknown]
  - Tricuspid valve incompetence [Unknown]
  - Left ventricular dysfunction [Recovered/Resolved]
  - Hyperkinetic heart syndrome [Unknown]
  - Malignant neoplasm progression [Recovering/Resolving]
  - Carcinoid syndrome [Unknown]
  - Ventricular hypokinesia [Recovered/Resolved]
  - Carcinoid heart disease [Unknown]
  - Metastasis [Recovering/Resolving]
  - Generalised oedema [Unknown]
  - Dyspnoea exertional [Unknown]
  - Diastolic dysfunction [Unknown]

NARRATIVE: CASE EVENT DATE: 2017
